FAERS Safety Report 17912101 (Version 1)
Quarter: 2020Q2

REPORT INFORMATION
  Report Type: Spontaneous
  Country: GB (occurrence: GB)
  Receive Date: 20200618
  Receipt Date: 20200618
  Transmission Date: 20200714
  Serious: Yes (Death, Other)
  Sender: FDA-Public Use
  Company Number: GB-REGENERON PHARMACEUTICALS, INC.-2020-44669

PATIENT

DRUGS (1)
  1. EYLEA [Suspect]
     Active Substance: AFLIBERCEPT
     Indication: MACULAR DEGENERATION
     Dosage: 3 INJECTIONS PRIOR TO EVENT ^^TIREDNESS^^, 7 INJECTIONS IN TOTAL

REACTIONS (10)
  - Influenza like illness [Unknown]
  - Anxiety [Unknown]
  - Cough [Unknown]
  - Circulatory collapse [Fatal]
  - Dyspnoea [Unknown]
  - Fatigue [Unknown]
  - Dyspnoea at rest [Unknown]
  - Pulmonary embolism [Fatal]
  - Stress [Unknown]
  - Panic attack [Unknown]

NARRATIVE: CASE EVENT DATE: 2019
